FAERS Safety Report 16871200 (Version 4)
Quarter: 2020Q2

REPORT INFORMATION
  Report Type: Spontaneous
  Country: PT (occurrence: PT)
  Receive Date: 20190930
  Receipt Date: 20200414
  Transmission Date: 20200713
  Serious: Yes (Hospitalization, Other)
  Sender: FDA-Public Use
  Company Number: PT-LUPIN PHARMACEUTICALS INC.-2019-06232

PATIENT
  Age: 95 Year
  Sex: Female

DRUGS (7)
  1. DIAZEPAM. [Interacting]
     Active Substance: DIAZEPAM
     Indication: INSOMNIA
     Dosage: 10 MILLIGRAM, QD (AT NIGHT) (INTERMEDIATE RELEASE)
     Route: 048
     Dates: start: 201802, end: 20180313
  2. RISPERIDONE. [Interacting]
     Active Substance: RISPERIDONE
     Indication: PRODUCT USED FOR UNKNOWN INDICATION
     Dosage: 0.5 MILLIGRAM, AT NIGHT, INTERMEDIATE RELASE
     Route: 048
     Dates: start: 20180312, end: 20180313
  3. QUETIAPINE. [Suspect]
     Active Substance: QUETIAPINE
     Indication: INSOMNIA
     Dosage: 100 MILLIGRAM, QD (INTERMEDIATE RELEASE: AT NIGHT)
     Route: 048
     Dates: start: 20180308, end: 20180313
  4. FOLATE SODIUM [Concomitant]
     Active Substance: FOLATE SODIUM
     Indication: ANAEMIA
     Dosage: 5 MILLIGRAM, QD
     Route: 065
  5. IRON SULFATE [Concomitant]
     Active Substance: FERROUS SULFATE ANHYDROUS
     Indication: ANAEMIA
     Dosage: 329.7 MILLIGRAM, QD
     Route: 065
  6. ENALAPRIL [Concomitant]
     Active Substance: ENALAPRIL
     Indication: HYPERTENSION
     Dosage: 5 MILLIGRAM, QD
     Route: 065
  7. CARBAMAZEPINE. [Interacting]
     Active Substance: CARBAMAZEPINE
     Indication: TRIGEMINAL NEURALGIA
     Dosage: 200 MILLIGRAM, AT NIGHT (INTERMEDIATE RELEASE)
     Route: 048

REACTIONS (2)
  - Delirium [Recovered/Resolved]
  - Drug interaction [Unknown]

NARRATIVE: CASE EVENT DATE: 2018
